FAERS Safety Report 21694910 (Version 1)
Quarter: 2022Q4

REPORT INFORMATION
  Report Type: Report from Study
  Country: EG (occurrence: EG)
  Receive Date: 20221207
  Receipt Date: 20221207
  Transmission Date: 20230113
  Serious: Yes (Other)
  Sender: FDA-Public Use
  Company Number: EG-002147023-NVSC2022EG283387

PATIENT
  Age: 13 Year
  Sex: Male

DRUGS (3)
  1. OMNITROPE [Suspect]
     Active Substance: SOMATROPIN
     Indication: Growth hormone deficiency
     Dosage: 1.4 MG, QD (STRENGTH;10 MG /1.5ML)
     Route: 058
     Dates: start: 20211107, end: 20220913
  2. OMNITROPE [Suspect]
     Active Substance: SOMATROPIN
     Dosage: 1.7 MG, QD (STRENGTH; 5 MG/1.5ML)
     Route: 058
     Dates: start: 20221020
  3. SEPTAZOLE [Concomitant]
     Indication: Bladder hypertrophy
     Dosage: 2 DOSAGE FORM, QD (STOPPED AFTER 2 DAYS)
     Route: 048
     Dates: start: 20221030

REACTIONS (4)
  - Splenomegaly [Not Recovered/Not Resolved]
  - Viral infection [Not Recovered/Not Resolved]
  - Growth retardation [Recovered/Resolved]
  - Product availability issue [Recovered/Resolved]

NARRATIVE: CASE EVENT DATE: 20220418
